FAERS Safety Report 10609783 (Version 3)
Quarter: 2014Q4

REPORT INFORMATION
  Report Type: Spontaneous
  Country: FR (occurrence: None)
  Receive Date: 20141124
  Receipt Date: 20141204
  Transmission Date: 20150529
  Serious: Yes (Other)
  Sender: FDA-Public Use
  Company Number: ADR-2014-02212

PATIENT
  Age: 30 Year
  Sex: Male

DRUGS (2)
  1. BACLOFEN (ORAL) [Suspect]
     Active Substance: BACLOFEN
     Indication: ALCOHOLISM
     Dates: start: 20110817
  2. BENZODIAZEPINES [Suspect]
     Active Substance: BENZODIAZEPINE

REACTIONS (9)
  - Treatment noncompliance [None]
  - Hyperhidrosis [None]
  - Pruritus [None]
  - Therapeutic response decreased [None]
  - Euphoric mood [None]
  - Anxiety [None]
  - Tremor [None]
  - Drug withdrawal syndrome [None]
  - Incorrect dose administered [None]

NARRATIVE: CASE EVENT DATE: 20141010
